FAERS Safety Report 4584740-X (Version None)
Quarter: 2005Q1

REPORT INFORMATION
  Report Type: 
  Country: None (occurrence: None)
  Receive Date: 20050215
  Receipt Date: 20040213
  Transmission Date: 20050727
  Serious: No
  Sender: FDA-Public Use
  Company Number: C04-C-021

PATIENT
  Sex: Female

DRUGS (1)
  1. PHENTERMINE HCL [Suspect]
     Indication: WEIGHT CONTROL

REACTIONS (4)
  - ASTHENIA [None]
  - DRUG INEFFECTIVE [None]
  - DRY MOUTH [None]
  - HEART RATE INCREASED [None]
